FAERS Safety Report 11738518 (Version 1)
Quarter: 2015Q4

REPORT INFORMATION
  Report Type: Spontaneous
  Country: FR (occurrence: FR)
  Receive Date: 20151113
  Receipt Date: 20151113
  Transmission Date: 20160304
  Serious: Yes (Other)
  Sender: FDA-Public Use
  Company Number: FR-ASTRAZENECA-2015SF08741

PATIENT
  Age: 26359 Day
  Sex: Female

DRUGS (1)
  1. IRESSA [Suspect]
     Active Substance: GEFITINIB
     Indication: NON-SMALL CELL LUNG CANCER
     Route: 048
     Dates: start: 201108, end: 201507

REACTIONS (2)
  - Disease progression [Unknown]
  - Mucinous breast carcinoma [Not Recovered/Not Resolved]

NARRATIVE: CASE EVENT DATE: 201504
